FAERS Safety Report 8290196-6 (Version None)
Quarter: 2012Q1

REPORT INFORMATION
  Report Type: 
  Country: None (occurrence: None)
  Receive Date: 20120316
  Receipt Date: 20090309
  Transmission Date: 20120608
  Serious: Yes (Other)
  Sender: FDA-Public Use
  Company Number: PHEH2009US02047

PATIENT
  Age: 78 Year
  Sex: Female

DRUGS (3)
  1. TEKTURNA [Suspect]
     Indication: HYPERTENSION
     Dosage: 150MG, QD
  2. MICARDIS [Suspect]
  3. COREG [Suspect]
     Dosage: 2.5 MG, BID

REACTIONS (1)
  - BLOOD PRESSURE INADEQUATELY CONTROLLED [None]
